FAERS Safety Report 6960436-1 (Version None)
Quarter: 2010Q3

REPORT INFORMATION
  Report Type: 
  Country: None (occurrence: None)
  Receive Date: 20100823
  Receipt Date: 20100630
  Transmission Date: 20110219
  Serious: No
  Sender: FDA-Public Use
  Company Number: 014999

PATIENT
  Sex: Female
  Weight: 75 kg

DRUGS (3)
  1. CIMZIA [Suspect]
     Indication: CROHN'S DISEASE
     Dosage: (400 MG 1X/MONTH SUBCUTANEOUS) ; (SUBCUTANEOUS)
     Route: 058
     Dates: start: 20090301, end: 20091201
  2. CIMZIA [Suspect]
     Indication: CROHN'S DISEASE
     Dosage: (400 MG 1X/MONTH SUBCUTANEOUS) ; (SUBCUTANEOUS)
     Route: 058
     Dates: start: 20100101
  3. PREDNISONE [Concomitant]

REACTIONS (2)
  - CROHN'S DISEASE [None]
  - DRUG EXPOSURE DURING PREGNANCY [None]
